FAERS Safety Report 4667351-7 (Version None)
Quarter: 2005Q2

REPORT INFORMATION
  Report Type: 
  Country: None (occurrence: None)
  Receive Date: 20050519
  Receipt Date: 20050519
  Transmission Date: 20051028
  Serious: No
  Sender: FDA-Public Use
  Company Number: None

PATIENT
  Age: 45 Year
  Sex: Female
  Weight: 53.5244 kg

DRUGS (4)
  1. LUTERA TABS 28 PAK [Suspect]
     Indication: OVARIAN CYST
     Dosage: 1 BY MOUTH TABLET DAILY (CONTINUOUSLY). PATIENT TAKES IN AM
     Route: 048
     Dates: start: 20050301
  2. POLYETHYLENE GI [Concomitant]
  3. DRYSOL DAB-O-MATIC SOL [Concomitant]
  4. LIPITOR [Concomitant]

REACTIONS (2)
  - ABDOMINAL PAIN [None]
  - PHARMACEUTICAL PRODUCT COMPLAINT [None]
